FAERS Safety Report 6305207-4 (Version None)
Quarter: 2009Q3

REPORT INFORMATION
  Report Type: 
  Country: None (occurrence: None)
  Receive Date: 20090810
  Receipt Date: 20090810
  Transmission Date: 20100115
  Serious: Yes (Other)
  Sender: FDA-Public Use
  Company Number: None

PATIENT
  Age: 38 Year
  Sex: Female
  Weight: 92.9874 kg

DRUGS (3)
  1. BUPROPION HCL [Suspect]
     Indication: DEPRESSION
     Dosage: 300MG XL DAILY PO
     Route: 048
     Dates: start: 20090416, end: 20090601
  2. BUPROPION HCL [Suspect]
     Indication: DEPRESSION
     Dosage: 300MG XL DAILY PO
     Route: 048
     Dates: start: 20090601, end: 20090701
  3. WELLBUTRIN XL [Suspect]

REACTIONS (14)
  - ANGER [None]
  - ANXIETY [None]
  - CHEST PAIN [None]
  - CONSTIPATION [None]
  - DEPRESSION [None]
  - DISTURBANCE IN ATTENTION [None]
  - DYSPEPSIA [None]
  - EYELID OEDEMA [None]
  - INSOMNIA [None]
  - NIGHTMARE [None]
  - PARAESTHESIA [None]
  - PRODUCT SUBSTITUTION ISSUE [None]
  - TREMOR [None]
  - VISION BLURRED [None]
